FAERS Safety Report 13702903 (Version 1)
Quarter: 2017Q2

REPORT INFORMATION
  Report Type: Spontaneous
  Country: US (occurrence: US)
  Receive Date: 20170629
  Receipt Date: 20170629
  Transmission Date: 20170830
  Serious: Yes (Other)
  Sender: FDA-Public Use
  Company Number: US-EAGLE PHARMACEUTICALS, INC.-US-2017EAG000028

PATIENT

DRUGS (2)
  1. BENDEKA [Suspect]
     Active Substance: BENDAMUSTINE HYDROCHLORIDE
     Indication: NON-HODGKIN^S LYMPHOMA
     Dosage: 180 MG, UNK (CYCLE1)
     Route: 042
     Dates: start: 20170315
  2. BENADRYL [Concomitant]
     Active Substance: DIPHENHYDRAMINE HYDROCHLORIDE
     Indication: PREMEDICATION
     Dosage: 25 MG, UNK
     Route: 042
     Dates: start: 20170315, end: 20170316

REACTIONS (2)
  - Infusion site cellulitis [Unknown]
  - Infusion site phlebitis [Unknown]

NARRATIVE: CASE EVENT DATE: 20170316
